FAERS Safety Report 9318288 (Version 1)
Quarter: 2013Q2

REPORT INFORMATION
  Report Type: Spontaneous
  Country: US (occurrence: US)
  Receive Date: 20130530
  Receipt Date: 20130530
  Transmission Date: 20140414
  Serious: No
  Sender: FDA-Public Use
  Company Number: US-NOVEN-12US005645

PATIENT
  Age: 10 Year
  Sex: Female

DRUGS (2)
  1. DAYTRANA [Suspect]
     Indication: ATTENTION DEFICIT/HYPERACTIVITY DISORDER
     Dosage: 30 MG, UNK
     Route: 062
     Dates: start: 20121106, end: 20121106
  2. DAYTRANA [Suspect]
     Dosage: 30 MG, CUT 1/3 OFF FOR 20 MG DOSE
     Dates: start: 20121107

REACTIONS (4)
  - Muscular weakness [Recovered/Resolved]
  - Headache [Recovered/Resolved]
  - Wrong technique in drug usage process [Not Recovered/Not Resolved]
  - Drug prescribing error [Not Recovered/Not Resolved]
